FAERS Safety Report 10154496 (Version 1)
Quarter: 2014Q2

REPORT INFORMATION
  Report Type: Spontaneous
  Country: US (occurrence: US)
  Receive Date: 20140506
  Receipt Date: 20140506
  Transmission Date: 20141212
  Serious: No
  Sender: FDA-Public Use
  Company Number: US-PFIZER INC-2014121493

PATIENT
  Age: 62 Year
  Sex: Female
  Weight: 68.03 kg

DRUGS (6)
  1. GABAPENTIN [Suspect]
     Indication: DIABETIC NEUROPATHY
     Dosage: UNK
     Dates: start: 201403, end: 201403
  2. IBUPROFEN [Concomitant]
     Dosage: UNK
  3. ATORVASTATIN [Concomitant]
     Dosage: 40 MG, UNK
  4. METFORMIN [Concomitant]
     Dosage: UNK
  5. JANUVIA [Concomitant]
     Dosage: 100 MG, UNK
  6. VITAMIN B12 [Concomitant]
     Dosage: 2500 UG, UNK
     Route: 060

REACTIONS (1)
  - Drug ineffective [Unknown]
